FAERS Safety Report 9914703 (Version 1)
Quarter: 2014Q1

REPORT INFORMATION
  Report Type: Spontaneous
  Country: GB (occurrence: GB)
  Receive Date: 20140220
  Receipt Date: 20140220
  Transmission Date: 20141002
  Serious: Yes (Other)
  Sender: FDA-Public Use
  Company Number: GB-ACTAVIS-2014-02593

PATIENT
  Sex: Female

DRUGS (2)
  1. AZITHROMYCIN (UNKNOWN) [Suspect]
     Indication: LUNG INFECTION
     Dosage: UNK
     Route: 065
  2. ERGOTAMINE [Interacting]
     Indication: PRODUCT USED FOR UNKNOWN INDICATION
     Dosage: UNK
     Route: 065

REACTIONS (2)
  - Muscle spasms [Unknown]
  - Drug interaction [Unknown]
